FAERS Safety Report 7147818-2 (Version None)
Quarter: 2010Q4

REPORT INFORMATION
  Report Type: 
  Country: None (occurrence: None)
  Receive Date: 20101206
  Receipt Date: 20101206
  Transmission Date: 20110411
  Serious: Yes (Hospitalization)
  Sender: FDA-Public Use
  Company Number: None

PATIENT
  Age: 31 Year
  Sex: Female
  Weight: 62 kg

DRUGS (5)
  1. SCOBUREN 20 MG RENAUDIN-FRANCE [Suspect]
     Indication: ABDOMINAL DISCOMFORT
     Dosage: 20 MG  ONE TIME IV BOLUS
     Route: 040
     Dates: start: 20090515, end: 20090515
  2. SCOBUREN 20 MG RENAUDIN-FRANCE [Suspect]
     Indication: ABDOMINAL PAIN UPPER
     Dosage: 20 MG  ONE TIME IV BOLUS
     Route: 040
     Dates: start: 20090515, end: 20090515
  3. LEVOFLOXACIN [Concomitant]
  4. DIFLUCAN [Concomitant]
  5. NEXIUM [Concomitant]

REACTIONS (1)
  - TACHYCARDIA [None]
